FAERS Safety Report 5688533-1 (Version None)
Quarter: 2008Q1

REPORT INFORMATION
  Report Type: 
  Country: None (occurrence: None)
  Receive Date: 20080331
  Receipt Date: 20080317
  Transmission Date: 20080703
  Serious: Yes (Life-Threatening, Hospitalization, Other)
  Sender: FDA-Public Use
  Company Number: US-BAYER-200817125NA

PATIENT
  Age: 49 Year
  Sex: Female

DRUGS (4)
  1. AVELOX [Suspect]
     Indication: UPPER RESPIRATORY TRACT INFECTION
     Dates: start: 20080308
  2. TOPROL-XL [Concomitant]
  3. SYNTHROID [Concomitant]
  4. LEVEMIR [Concomitant]

REACTIONS (4)
  - DEHYDRATION [None]
  - DIABETIC KETOACIDOTIC HYPERGLYCAEMIC COMA [None]
  - LOSS OF CONSCIOUSNESS [None]
  - PANCREATITIS [None]
